FAERS Safety Report 4659689-4 (Version None)
Quarter: 2005Q2

REPORT INFORMATION
  Report Type: 
  Country: None (occurrence: None)
  Receive Date: 20050420
  Receipt Date: 20050310
  Transmission Date: 20051028
  Serious: No
  Sender: FDA-Public Use
  Company Number: PHEH2005US03021

PATIENT
  Age: 83 Year
  Sex: Male

DRUGS (6)
  1. ENABLEX [Suspect]
     Indication: HYPERTONIC BLADDER
     Dosage: 7.5 MG QD
     Dates: start: 20050228
  2. PROZAC [Concomitant]
  3. DIGOXIN [Concomitant]
  4. DILANTIN [Concomitant]
  5. NEURONTIN [Concomitant]
  6. COUMADIN [Concomitant]

REACTIONS (1)
  - FAECES DISCOLOURED [None]
